FAERS Safety Report 6827268-6 (Version None)
Quarter: 2010Q3

REPORT INFORMATION
  Report Type: 
  Country: None (occurrence: None)
  Receive Date: 20100709
  Receipt Date: 20100630
  Transmission Date: 20110219
  Serious: Yes (Hospitalization)
  Sender: FDA-Public Use
  Company Number: US-WYE-H14788410

PATIENT
  Age: 58 Year
  Sex: Female
  Weight: 77 kg

DRUGS (13)
  1. TORISEL [Suspect]
     Indication: CARCINOID TUMOUR OF THE PANCREAS
     Dosage: 25MG ON DAYS 1, 8, 15 AND 22, EVERY 28 DAYS
     Route: 042
     Dates: start: 20091222, end: 20100323
  2. TORISEL [Suspect]
     Indication: NEUROENDOCRINE CARCINOMA
     Dosage: UNKNOWN
     Dates: start: 20100101
  3. NEXIUM [Concomitant]
  4. FLUOXETINE HCL [Concomitant]
  5. LISINOPRIL [Concomitant]
  6. IBUPROFEN [Concomitant]
  7. POTASSIUM CHLORIDE [Concomitant]
  8. IMODIUM [Concomitant]
  9. DOXYCYCLINE [Concomitant]
  10. CYCLOSPORINE [Concomitant]
  11. TUMS [Concomitant]
  12. BEVACIZUMAB [Suspect]
     Indication: CARCINOID TUMOUR OF THE PANCREAS
     Dosage: 10MG/KG OVER 30-90 MINUTES ON DAYS 1 AND 15, EVERY 28 DAYS
     Route: 042
     Dates: start: 20091222, end: 20100316
  13. METOPROLOL [Concomitant]

REACTIONS (5)
  - CARDIAC FAILURE CONGESTIVE [None]
  - HYPOXIA [None]
  - LEFT VENTRICULAR DYSFUNCTION [None]
  - LUNG INFILTRATION [None]
  - PNEUMONITIS [None]
